FAERS Safety Report 22143635 (Version 1)
Quarter: 2023Q1

REPORT INFORMATION
  Report Type: Spontaneous
  Country: GR (occurrence: GR)
  Receive Date: 20230327
  Receipt Date: 20230327
  Transmission Date: 20230417
  Serious: No
  Sender: FDA-Public Use
  Company Number: GR-PFIZER INC-PV202300051829

PATIENT
  Age: 65 Year
  Sex: Male

DRUGS (1)
  1. PAXLOVID [Suspect]
     Active Substance: NIRMATRELVIR\RITONAVIR
     Indication: COVID-19 treatment
     Dosage: 2 DF, 3X/DAY (2 TABLETS IN THE MORNING, 2 TABLETS AT THE AFTERNOON AND 2 TABLETS IN THE EVENING)

REACTIONS (2)
  - Incorrect dosage administered [Unknown]
  - Incorrect product administration duration [Unknown]
